FAERS Safety Report 14540170 (Version 1)
Quarter: 2018Q1

REPORT INFORMATION
  Report Type: Spontaneous
  Country: US (occurrence: US)
  Receive Date: 20180216
  Receipt Date: 20180216
  Transmission Date: 20180509
  Serious: No
  Sender: FDA-Public Use
  Company Number: US-LUNDBECK-DKLU2042903

PATIENT
  Sex: Male

DRUGS (1)
  1. ONFI [Suspect]
     Active Substance: CLOBAZAM
     Indication: PRODUCT USED FOR UNKNOWN INDICATION
     Route: 065

REACTIONS (9)
  - Nausea [Unknown]
  - Constipation [Unknown]
  - Depression [Unknown]
  - Abdominal distension [Unknown]
  - Mood swings [Unknown]
  - Diarrhoea [Unknown]
  - Eye pain [Unknown]
  - Headache [Unknown]
  - Thirst [Unknown]
